FAERS Safety Report 9556218 (Version 1)
Quarter: 2013Q3

REPORT INFORMATION
  Report Type: Spontaneous
  Country: BE (occurrence: BE)
  Receive Date: 20130926
  Receipt Date: 20130926
  Transmission Date: 20140515
  Serious: Yes (Other)
  Sender: FDA-Public Use
  Company Number: BE-JNJFOC-20130915054

PATIENT
  Age: 62 Year
  Sex: Female

DRUGS (8)
  1. XARELTO [Suspect]
     Indication: PRODUCT USED FOR UNKNOWN INDICATION
     Route: 048
     Dates: start: 20130515, end: 201308
  2. LAMISIL [Suspect]
     Indication: FUNGAL INFECTION
     Route: 065
     Dates: start: 20130531
  3. DAKTARIN [Concomitant]
     Route: 065
  4. L-THYROXINE [Concomitant]
     Route: 065
  5. ZINNAT [Concomitant]
     Route: 065
     Dates: start: 201305
  6. LIPANTHYL [Concomitant]
     Route: 065
  7. PANTOPRAZOLE [Concomitant]
     Route: 065
  8. BONEFOS [Concomitant]
     Route: 065

REACTIONS (3)
  - Bacterial toxaemia [Recovering/Resolving]
  - Pruritus [Recovering/Resolving]
  - Blood blister [Recovering/Resolving]
